FAERS Safety Report 15517645 (Version 2)
Quarter: 2018Q4

REPORT INFORMATION
  Report Type: Spontaneous
  Country: JP (occurrence: JP)
  Receive Date: 20181017
  Receipt Date: 20181023
  Transmission Date: 20190205
  Serious: Yes (Other)
  Sender: FDA-Public Use
  Company Number: JP-JNJFOC-20181021008

PATIENT
  Age: 73 Year
  Sex: Female

DRUGS (17)
  1. ARA-C [Concomitant]
     Active Substance: CYTARABINE
     Indication: LYMPHOCYTIC LYMPHOMA
     Route: 065
  2. OFATUMUMAB [Concomitant]
     Active Substance: OFATUMUMAB
     Indication: LYMPHOCYTIC LYMPHOMA
     Route: 065
  3. BENDAMUSTINE HYDROCHLORIDE. [Suspect]
     Active Substance: BENDAMUSTINE HYDROCHLORIDE
     Indication: CHRONIC LYMPHOCYTIC LEUKAEMIA
     Route: 042
  4. RITUXIMAB. [Concomitant]
     Active Substance: RITUXIMAB
     Indication: CHRONIC LYMPHOCYTIC LEUKAEMIA
     Route: 065
  5. RITUXIMAB. [Concomitant]
     Active Substance: RITUXIMAB
     Indication: LYMPHOCYTIC LYMPHOMA
     Route: 065
  6. DOXORUBICIN [Concomitant]
     Active Substance: DOXORUBICIN
     Indication: LYMPHOCYTIC LYMPHOMA
     Route: 065
  7. IBRUTINIB [Suspect]
     Active Substance: IBRUTINIB
     Indication: LYMPHOCYTIC LYMPHOMA
     Route: 065
  8. RITUXIMAB. [Concomitant]
     Active Substance: RITUXIMAB
     Indication: LYMPHOCYTIC LYMPHOMA
     Route: 065
  9. CYCLOPHOSPHAMIDE. [Concomitant]
     Active Substance: CYCLOPHOSPHAMIDE
     Indication: LYMPHOCYTIC LYMPHOMA
     Route: 065
  10. VINCRISTINE [Concomitant]
     Active Substance: VINCRISTINE
     Indication: LYMPHOCYTIC LYMPHOMA
     Route: 065
  11. ETOPOSIDE. [Concomitant]
     Active Substance: ETOPOSIDE
     Indication: LYMPHOCYTIC LYMPHOMA
     Route: 065
  12. CARBOPLATIN. [Concomitant]
     Active Substance: CARBOPLATIN
     Indication: LYMPHOCYTIC LYMPHOMA
     Route: 065
  13. IBRUTINIB [Suspect]
     Active Substance: IBRUTINIB
     Indication: LYMPHOCYTIC LYMPHOMA
     Route: 065
  14. RITUXIMAB. [Concomitant]
     Active Substance: RITUXIMAB
     Indication: CHRONIC LYMPHOCYTIC LEUKAEMIA
     Route: 065
  15. DEXAMETHASONE. [Concomitant]
     Active Substance: DEXAMETHASONE
     Indication: LYMPHOCYTIC LYMPHOMA
     Route: 065
  16. IFOSFAMIDE. [Concomitant]
     Active Substance: IFOSFAMIDE
     Indication: LYMPHOCYTIC LYMPHOMA
     Route: 065
  17. PREDNISONE. [Concomitant]
     Active Substance: PREDNISONE
     Indication: LYMPHOCYTIC LYMPHOMA
     Route: 065

REACTIONS (2)
  - Cystitis haemorrhagic [Unknown]
  - Adenovirus infection [Unknown]
